FAERS Safety Report 5965718-8 (Version None)
Quarter: 2008Q4

REPORT INFORMATION
  Report Type: 
  Country: None (occurrence: None)
  Receive Date: 20081125
  Receipt Date: 20081121
  Transmission Date: 20090506
  Serious: Yes (Hospitalization)
  Sender: FDA-Public Use
  Company Number: A0758149A

PATIENT
  Age: 57 Year
  Sex: Male
  Weight: 125 kg

DRUGS (1)
  1. AVANDIA [Suspect]
     Dosage: 2MG PER DAY
     Route: 048
     Dates: start: 20051201, end: 20060501

REACTIONS (1)
  - MYOCARDIAL INFARCTION [None]
